FAERS Safety Report 16250512 (Version 4)
Quarter: 2020Q1

REPORT INFORMATION
  Report Type: Spontaneous
  Country: US (occurrence: US)
  Receive Date: 20190429
  Receipt Date: 20200331
  Transmission Date: 20200409
  Serious: Yes (Other)
  Sender: FDA-Public Use
  Company Number: US-PFIZER INC-2019175608

PATIENT
  Age: 44 Year
  Sex: Female
  Weight: 80.27 kg

DRUGS (1)
  1. LYRICA [Suspect]
     Active Substance: PREGABALIN
     Indication: FIBROMYALGIA
     Dosage: 150 MG, 3X/DAY
     Route: 048
     Dates: end: 201904

REACTIONS (6)
  - Neuropathy peripheral [Unknown]
  - Autoimmune disorder [Unknown]
  - Pain [Unknown]
  - Malaise [Not Recovered/Not Resolved]
  - Speech disorder [Not Recovered/Not Resolved]
  - Peroneal nerve palsy [Unknown]

NARRATIVE: CASE EVENT DATE: 201904
